FAERS Safety Report 25807040 (Version 1)
Quarter: 2025Q3

REPORT INFORMATION
  Report Type: Spontaneous
  Country: ID (occurrence: ID)
  Receive Date: 20250916
  Receipt Date: 20250916
  Transmission Date: 20251020
  Serious: Yes (Death, Hospitalization)
  Sender: MYLAN
  Company Number: ID-MYLANLABS-2025M1078537

PATIENT
  Age: 31 Year
  Sex: Female

DRUGS (36)
  1. SILDENAFIL [Suspect]
     Active Substance: SILDENAFIL
     Indication: Pulmonary hypertension
     Dosage: 40 MILLIGRAM, TID
  2. SILDENAFIL [Suspect]
     Active Substance: SILDENAFIL
     Dosage: 40 MILLIGRAM, TID
     Route: 065
  3. SILDENAFIL [Suspect]
     Active Substance: SILDENAFIL
     Dosage: 40 MILLIGRAM, TID
     Route: 065
  4. SILDENAFIL [Suspect]
     Active Substance: SILDENAFIL
     Dosage: 40 MILLIGRAM, TID
  5. SPIRONOLACTONE [Suspect]
     Active Substance: SPIRONOLACTONE
     Indication: Pulmonary hypertension
     Dosage: 50 MILLIGRAM, QD
  6. SPIRONOLACTONE [Suspect]
     Active Substance: SPIRONOLACTONE
     Dosage: 50 MILLIGRAM, QD
     Route: 065
  7. SPIRONOLACTONE [Suspect]
     Active Substance: SPIRONOLACTONE
     Dosage: 50 MILLIGRAM, QD
     Route: 065
  8. SPIRONOLACTONE [Suspect]
     Active Substance: SPIRONOLACTONE
     Dosage: 50 MILLIGRAM, QD
  9. FUROSEMIDE [Suspect]
     Active Substance: FUROSEMIDE
     Indication: Pulmonary hypertension
     Dosage: 40 MILLIGRAM, QD
  10. FUROSEMIDE [Suspect]
     Active Substance: FUROSEMIDE
     Dosage: 40 MILLIGRAM, QD
     Route: 065
  11. FUROSEMIDE [Suspect]
     Active Substance: FUROSEMIDE
     Dosage: 40 MILLIGRAM, QD
     Route: 065
  12. FUROSEMIDE [Suspect]
     Active Substance: FUROSEMIDE
     Dosage: 40 MILLIGRAM, QD
  13. BISOPROLOL [Suspect]
     Active Substance: BISOPROLOL
     Indication: Pulmonary hypertension
     Dosage: 5 MILLIGRAM, QD
  14. BISOPROLOL [Suspect]
     Active Substance: BISOPROLOL
     Dosage: 5 MILLIGRAM, QD
     Route: 065
  15. BISOPROLOL [Suspect]
     Active Substance: BISOPROLOL
     Dosage: 5 MILLIGRAM, QD
     Route: 065
  16. BISOPROLOL [Suspect]
     Active Substance: BISOPROLOL
     Dosage: 5 MILLIGRAM, QD
  17. DIGOXIN [Suspect]
     Active Substance: DIGOXIN
     Indication: Pulmonary hypertension
     Dosage: 0.25 MILLIGRAM, QD
  18. DIGOXIN [Suspect]
     Active Substance: DIGOXIN
     Dosage: 0.25 MILLIGRAM, QD
     Route: 065
  19. DIGOXIN [Suspect]
     Active Substance: DIGOXIN
     Dosage: 0.25 MILLIGRAM, QD
     Route: 065
  20. DIGOXIN [Suspect]
     Active Substance: DIGOXIN
     Dosage: 0.25 MILLIGRAM, QD
  21. DOBUTAMINE [Suspect]
     Active Substance: DOBUTAMINE HYDROCHLORIDE
     Indication: Pulmonary hypertension
  22. DOBUTAMINE [Suspect]
     Active Substance: DOBUTAMINE HYDROCHLORIDE
     Route: 065
  23. DOBUTAMINE [Suspect]
     Active Substance: DOBUTAMINE HYDROCHLORIDE
     Route: 065
  24. DOBUTAMINE [Suspect]
     Active Substance: DOBUTAMINE HYDROCHLORIDE
  25. ILOPROST [Suspect]
     Active Substance: ILOPROST
     Indication: Pulmonary hypertension
     Dosage: UNK, Q8H (NEBULIZATION FOR EVERY EIGHT HOURS)
  26. ILOPROST [Suspect]
     Active Substance: ILOPROST
     Dosage: UNK, Q8H (NEBULIZATION FOR EVERY EIGHT HOURS)
     Route: 055
  27. ILOPROST [Suspect]
     Active Substance: ILOPROST
     Dosage: UNK, Q8H (NEBULIZATION FOR EVERY EIGHT HOURS)
     Route: 055
  28. ILOPROST [Suspect]
     Active Substance: ILOPROST
     Dosage: UNK, Q8H (NEBULIZATION FOR EVERY EIGHT HOURS)
  29. CODEINE [Suspect]
     Active Substance: CODEINE
     Indication: Pulmonary hypertension
     Dosage: 10 MILLIGRAM, TID
  30. CODEINE [Suspect]
     Active Substance: CODEINE
     Dosage: 10 MILLIGRAM, TID
     Route: 065
  31. CODEINE [Suspect]
     Active Substance: CODEINE
     Dosage: 10 MILLIGRAM, TID
     Route: 065
  32. CODEINE [Suspect]
     Active Substance: CODEINE
     Dosage: 10 MILLIGRAM, TID
  33. WARFARIN [Concomitant]
     Active Substance: WARFARIN
     Indication: Product used for unknown indication
     Dosage: 2 MILLIGRAM, QD
  34. WARFARIN [Concomitant]
     Active Substance: WARFARIN
     Dosage: 2 MILLIGRAM, QD
     Route: 065
  35. WARFARIN [Concomitant]
     Active Substance: WARFARIN
     Dosage: 2 MILLIGRAM, QD
     Route: 065
  36. WARFARIN [Concomitant]
     Active Substance: WARFARIN
     Dosage: 2 MILLIGRAM, QD

REACTIONS (1)
  - Drug ineffective [Fatal]
